FAERS Safety Report 8576246-8 (Version None)
Quarter: 2012Q3

REPORT INFORMATION
  Report Type: 
  Country: None (occurrence: None)
  Receive Date: 20120807
  Receipt Date: 20120727
  Transmission Date: 20120928
  Serious: Yes (Hospitalization)
  Sender: FDA-Public Use
  Company Number: US-BAYER-2012-015867

PATIENT
  Age: 29 Year
  Sex: Female
  Weight: 95.238 kg

DRUGS (11)
  1. CYANOCOBALAMIN [Concomitant]
  2. DROSPIRENONE AND ETHINYL ESTRADIOL [Suspect]
     Indication: CONTRACEPTION
     Dosage: UNK
     Dates: start: 20091101, end: 20100101
  3. DARVOCET-N 50 [Concomitant]
  4. VENTOLIN HFA [Concomitant]
     Dosage: 90 ?G, UNK
     Route: 045
     Dates: start: 20091230
  5. YASMIN [Suspect]
     Indication: CONTRACEPTION
     Dosage: UNK
     Dates: start: 20080801, end: 20090501
  6. ANTIBIOTICS [Concomitant]
  7. VICODIN [Concomitant]
     Indication: PAIN
     Dosage: 5/325, PRN
     Route: 048
  8. PARACETAMOL W/PROPOXYPHENE [Concomitant]
     Dosage: UNK
     Route: 048
     Dates: start: 20100106
  9. YAZ [Suspect]
     Indication: CONTRACEPTION
     Dosage: UNK
     Dates: start: 20090601, end: 20091101
  10. PARACETAMOL W/PROPOXYPHENE [Concomitant]
     Dosage: UNK
     Dates: start: 20100107
  11. MEDROL [Concomitant]
     Dosage: 4 MG, UNK
     Route: 048

REACTIONS (5)
  - OEDEMA PERIPHERAL [None]
  - INJURY [None]
  - PULMONARY EMBOLISM [None]
  - PAIN [None]
  - DEEP VEIN THROMBOSIS [None]
